FAERS Safety Report 18651616 (Version 1)
Quarter: 2020Q4

REPORT INFORMATION
  Report Type: Spontaneous
  Country: US (occurrence: US)
  Receive Date: 20201222
  Receipt Date: 20201222
  Transmission Date: 20210114
  Serious: Yes (Other)
  Sender: FDA-Public Use
  Company Number: US-JUBILANT CADISTA PHARMACEUTICALS-2020JUB00240

PATIENT
  Age: 22 Year
  Sex: Male
  Weight: 83 kg

DRUGS (8)
  1. RISPERIDONE (MFR. MAJOR PHARMACEUTICALS) [Suspect]
     Active Substance: RISPERIDONE
     Indication: PSYCHOTIC DISORDER
     Dosage: 1 MG, 2X/DAY
     Route: 048
     Dates: start: 20200707, end: 20200715
  2. CLONAZEPAM. [Concomitant]
     Active Substance: CLONAZEPAM
  3. MAALOX ANTACID [Concomitant]
     Active Substance: ALUMINUM HYDROXIDE\DIMETHICONE\MAGNESIUM HYDROXIDE
     Dosage: UNK, AS NEEDED
  4. RISPERIDONE. [Suspect]
     Active Substance: RISPERIDONE
     Indication: PSYCHOTIC DISORDER
     Dosage: 3 MG, 2X/DAY
     Route: 048
     Dates: start: 20200719, end: 20200726
  5. LITHIUM. [Concomitant]
     Active Substance: LITHIUM
  6. LORAZEPAM. [Concomitant]
     Active Substance: LORAZEPAM
     Dosage: UNK, SPORADICALLY AS NEEDED
  7. RISPERIDONE. [Suspect]
     Active Substance: RISPERIDONE
     Indication: PSYCHOTIC DISORDER
     Dosage: 2 MG, 2X/DAY
     Route: 048
     Dates: start: 20200716, end: 20200718
  8. AMBIEN [Concomitant]
     Active Substance: ZOLPIDEM TARTRATE
     Dosage: UNK, OCCASIONALLY AS NEEDED

REACTIONS (1)
  - Priapism [Recovered/Resolved]

NARRATIVE: CASE EVENT DATE: 202007
